FAERS Safety Report 18166622 (Version 1)
Quarter: 2020Q3

REPORT INFORMATION
  Report Type: Spontaneous
  Country: JP (occurrence: JP)
  Receive Date: 20200819
  Receipt Date: 20200819
  Transmission Date: 20201103
  Serious: Yes (Other)
  Sender: FDA-Public Use
  Company Number: JP-TEVA-2020-JP-1815145

PATIENT
  Age: 68 Year
  Sex: Male

DRUGS (6)
  1. FLUOROURACIL. [Concomitant]
     Active Substance: FLUOROURACIL
     Indication: RECTAL CANCER METASTATIC
     Dosage: FLUOROURACIL (RAPID); RECEIVED AS A PART OF FOLFIRI.
     Route: 065
     Dates: start: 201802
  2. PANITUMUMAB [Concomitant]
     Active Substance: PANITUMUMAB
     Indication: RECTAL CANCER METASTATIC
     Route: 065
     Dates: start: 201802
  3. PREGABALIN. [Concomitant]
     Active Substance: PREGABALIN
     Indication: SPINAL OSTEOARTHRITIS
     Route: 065
  4. LEVOFOLINATE [Concomitant]
     Active Substance: LEVOLEUCOVORIN CALCIUM
     Indication: RECTAL CANCER METASTATIC
     Dosage: RECEIVED AS A PART OF FOLFIRI.
     Route: 065
     Dates: start: 201802
  5. FLUOROURACIL. [Concomitant]
     Active Substance: FLUOROURACIL
     Indication: RECTAL CANCER METASTATIC
     Dosage: FLUOROURACIL (SUSTAINED); RECEIVED AS A PART OF FOLFIRI.
     Route: 065
     Dates: start: 201802
  6. IRINOTECAN [Suspect]
     Active Substance: IRINOTECAN
     Indication: RECTAL CANCER METASTATIC
     Dosage: RECEIVED AS A PART OF FOLFIRI
     Route: 065
     Dates: start: 201802

REACTIONS (1)
  - Neuropathy peripheral [Recovering/Resolving]
